FAERS Safety Report 23154738 (Version 1)
Quarter: 2023Q4

REPORT INFORMATION
  Report Type: Spontaneous
  Country: US (occurrence: US)
  Receive Date: 20231107
  Receipt Date: 20231107
  Transmission Date: 20240110
  Serious: No
  Sender: FDA-Public Use
  Company Number: US-PFIZER INC-PV202300180745

PATIENT
  Sex: Female

DRUGS (1)
  1. ZAVEGEPANT [Suspect]
     Active Substance: ZAVEGEPANT
     Indication: Migraine
     Dosage: UNK

REACTIONS (1)
  - Dysgeusia [Unknown]
